FAERS Safety Report 8223950-7 (Version None)
Quarter: 2012Q1

REPORT INFORMATION
  Report Type: 
  Country: None (occurrence: None)
  Receive Date: 20120321
  Receipt Date: 20120312
  Transmission Date: 20120608
  Serious: Yes (Other)
  Sender: FDA-Public Use
  Company Number: FI-JNJFOC-20120307724

PATIENT
  Age: 50 Year
  Sex: Male

DRUGS (2)
  1. AN UNKNOWN MEDICATION [Concomitant]
     Route: 065
  2. RISPERDAL CONSTA [Suspect]
     Indication: SCHIZOPHRENIA
     Route: 030

REACTIONS (3)
  - WEIGHT INCREASED [None]
  - EYE HAEMORRHAGE [None]
  - MUSCULOSKELETAL PAIN [None]
